FAERS Safety Report 5419934-4 (Version None)
Quarter: 2007Q3

REPORT INFORMATION
  Report Type: 
  Country: None (occurrence: None)
  Receive Date: 20070820
  Receipt Date: 20070808
  Transmission Date: 20080115
  Serious: Yes (Other)
  Sender: FDA-Public Use
  Company Number: FR-PFIZER INC-2007050771

PATIENT
  Sex: Male

DRUGS (15)
  1. LYRICA [Suspect]
     Indication: NEURALGIA
     Dates: start: 20070220, end: 20070301
  2. DRUG, UNSPECIFIED [Concomitant]
  3. XYZAL [Concomitant]
  4. HYDROCORTISONE [Concomitant]
     Dosage: DAILY DOSE:10MG
  5. PREDNISONE [Concomitant]
  6. OMEPRAZOLE [Concomitant]
  7. TAHOR [Concomitant]
     Indication: HYPERCHOLESTEROLAEMIA
  8. CORDIPATCH [Concomitant]
  9. COTAREG [Concomitant]
  10. DIFRAREL [Concomitant]
  11. ART 50 [Concomitant]
  12. ATENOLOL [Concomitant]
  13. PROFENID [Concomitant]
  14. XATRAL [Concomitant]
     Indication: PROSTATIC DISORDER
  15. ASPEGIC 325 [Concomitant]

REACTIONS (9)
  - BALANCE DISORDER [None]
  - BLINDNESS [None]
  - DIZZINESS [None]
  - DRY MOUTH [None]
  - PRURITUS [None]
  - RETINAL ARTERY OCCLUSION [None]
  - SOMNOLENCE [None]
  - VISION BLURRED [None]
  - VISUAL FIELD DEFECT [None]
